FAERS Safety Report 10394095 (Version 1)
Quarter: 2014Q3

REPORT INFORMATION
  Report Type: Report from Study
  Country: JP (occurrence: JP)
  Receive Date: 20140819
  Receipt Date: 20140819
  Transmission Date: 20150326
  Serious: Yes (Other)
  Sender: FDA-Public Use
  Company Number: JP-CELGENEUS-087-50794-14082377

PATIENT
  Age: 69 Year
  Sex: Male

DRUGS (6)
  1. VIDAZA [Suspect]
     Active Substance: AZACITIDINE
     Route: 066
     Dates: start: 20130722, end: 20130726
  2. VIDAZA [Suspect]
     Active Substance: AZACITIDINE
     Route: 065
     Dates: start: 20130424, end: 20130501
  3. VIDAZA [Suspect]
     Active Substance: AZACITIDINE
     Route: 065
     Dates: start: 20130826, end: 20130830
  4. VIDAZA [Suspect]
     Active Substance: AZACITIDINE
     Route: 065
     Dates: start: 20130527, end: 20130531
  5. VIDAZA [Suspect]
     Active Substance: AZACITIDINE
     Route: 065
     Dates: start: 20130624, end: 20130628
  6. VIDAZA [Suspect]
     Active Substance: AZACITIDINE
     Indication: PRODUCT USED FOR UNKNOWN INDICATION
     Dosage: 75 MILLIGRAM/SQ. METER
     Route: 065
     Dates: start: 20130313, end: 20130325

REACTIONS (4)
  - Aspartate aminotransferase increased [Recovered/Resolved]
  - Alanine aminotransferase increased [Recovered/Resolved]
  - Colitis ischaemic [Recovered/Resolved]
  - Occult blood [Recovered/Resolved]

NARRATIVE: CASE EVENT DATE: 20130319
